FAERS Safety Report 11145939 (Version 1)
Quarter: 2015Q2

REPORT INFORMATION
  Report Type: Spontaneous
  Country: GB (occurrence: GB)
  Receive Date: 20150528
  Receipt Date: 20150528
  Transmission Date: 20150821
  Serious: Yes (Death, Life-Threatening, Other)
  Sender: FDA-Public Use
  Company Number: GB-GLAXOSMITHKLINE-GB2015071272

PATIENT
  Age: 59 Year
  Sex: Female

DRUGS (5)
  1. RETIGABINE [Suspect]
     Active Substance: EZOGABINE
     Indication: COMPLEX PARTIAL SEIZURES
     Route: 048
  2. GAVISCON [Concomitant]
     Active Substance: ALUMINUM HYDROXIDE\MAGNESIUM CARBONATE
  3. LANSOPRAZOLE. [Concomitant]
     Active Substance: LANSOPRAZOLE
  4. LEVETIRACETAM. [Concomitant]
     Active Substance: LEVETIRACETAM
  5. TEGRETOL XR [Concomitant]
     Active Substance: CARBAMAZEPINE

REACTIONS (2)
  - Cardiac arrest [Fatal]
  - Brain injury [Not Recovered/Not Resolved]

NARRATIVE: CASE EVENT DATE: 20150510
